FAERS Safety Report 4872711-5 (Version None)
Quarter: 2006Q1

REPORT INFORMATION
  Report Type: 
  Country: None (occurrence: None)
  Receive Date: 20060103
  Receipt Date: 20051219
  Transmission Date: 20060701
  Serious: Yes (Hospitalization)
  Sender: FDA-Public Use
  Company Number: US200512003888

PATIENT
  Sex: Female

DRUGS (2)
  1. FORTEO [Suspect]
     Indication: OSTEOPOROSIS
     Dates: start: 20040101
  2. FORTEO PEN (FORTEO PEN) [Concomitant]

REACTIONS (4)
  - EMPHYSEMA [None]
  - LUNG DISORDER [None]
  - MOBILITY DECREASED [None]
  - WALKING AID USER [None]
